FAERS Safety Report 26083161 (Version 2)
Quarter: 2025Q4

REPORT INFORMATION
  Report Type: Spontaneous
  Country: ID (occurrence: ID)
  Receive Date: 20251124
  Receipt Date: 20251209
  Transmission Date: 20260118
  Serious: Yes (Hospitalization)
  Sender: PFIZER
  Company Number: ID-PFIZER INC-PV202500135173

PATIENT
  Age: 36 Year
  Sex: Female

DRUGS (9)
  1. VINCRISTINE SULFATE [Suspect]
     Active Substance: VINCRISTINE SULFATE
     Indication: Gestational trophoblastic tumour
     Dosage: 1 MG/M2, (MAXIMUM 2 MG ,DAY 8)
     Route: 042
     Dates: start: 2024
  2. METHOTREXATE [Suspect]
     Active Substance: METHOTREXATE
     Indication: Gestational trophoblastic tumour
     Dosage: 100 MG/M2, CYCLIC (100 MG/M2, IV BOLUS, DAY 1)
     Route: 042
     Dates: start: 2024
  3. METHOTREXATE [Suspect]
     Active Substance: METHOTREXATE
     Dosage: 200 MG/M2, CYCLIC (200 MG/M2, FOLLOWED BY INFUSION OVER 12 HOURS)
     Dates: start: 2024
  4. ETOPOSIDE [Suspect]
     Active Substance: ETOPOSIDE
     Indication: Gestational trophoblastic tumour
     Dosage: 100 MG/M2, CYCLIC (100 MG/M2, DAY 1 AND DAY 2)
     Route: 042
     Dates: start: 2024
  5. ACTINOMYCIN D [Suspect]
     Active Substance: DACTINOMYCIN
     Indication: Gestational trophoblastic tumour
     Dosage: 0.5 MG, CYCLIC (0.5 MG, DAY 1 AND DAY 2)
     Route: 042
     Dates: start: 2024
  6. LEUCOVORIN CALCIUM [Suspect]
     Active Substance: LEUCOVORIN CALCIUM
     Indication: Gestational trophoblastic tumour
     Dosage: 15 MG, CYCLIC (15 MG, PO/IM EVERY 12 HOURS FOR 4 DOSES STARTING 24 HOURS AFTER METHOTREXATE, DAY 2)
     Route: 048
     Dates: start: 2024
  7. LEUCOVORIN CALCIUM [Suspect]
     Active Substance: LEUCOVORIN CALCIUM
     Dosage: 15 MG, CYCLIC (15 MG, PO/IM EVERY 12 HOURS FOR 4 DOSES STARTING 24 HOURS AFTER METHOTREXATE, DAY 2)
     Route: 030
     Dates: start: 2024
  8. CYCLOPHOSPHAMIDE [Suspect]
     Active Substance: CYCLOPHOSPHAMIDE
     Indication: Gestational trophoblastic tumour
     Dosage: 600 MG/M2, CYCLIC (DAY 8)
     Route: 042
     Dates: start: 2024
  9. TRANEXAMIC ACID [Concomitant]
     Active Substance: TRANEXAMIC ACID
     Indication: Haemorrhage
     Dosage: 500 MG, 3X/DAY
     Route: 042

REACTIONS (2)
  - Fatigue [Unknown]
  - Nausea [Unknown]

NARRATIVE: CASE EVENT DATE: 20240101
